FAERS Safety Report 15952594 (Version 1)
Quarter: 2019Q1

REPORT INFORMATION
  Report Type: Spontaneous
  Country: CN (occurrence: CN)
  Receive Date: 20190211
  Receipt Date: 20190211
  Transmission Date: 20190417
  Serious: Yes (Other)
  Sender: FDA-Public Use
  Company Number: CN-BAXTER-2019BAX002868

PATIENT
  Age: 39 Year
  Sex: Female
  Weight: 46 kg

DRUGS (4)
  1. PHARMORUBICIN RD [Suspect]
     Active Substance: EPIRUBICIN
     Indication: BREAST CANCER
     Dosage: DOSAGE FORM: POWDER INJECTION; DILUTED WITH 100 ML OF %5 GLUCOSE INJECTION, ON DAY 1
     Route: 041
     Dates: start: 20181220, end: 20181220
  2. 0.9% SODIUM CHLORIDE INJECTION [Suspect]
     Active Substance: SODIUM CHLORIDE
     Indication: MEDICATION DILUTION
     Dosage: DILUTED ENDOXAN 750 MG WITH 100 ML OF  0.9% SODIUM CHLORIDE, ON DAY 1
     Route: 041
     Dates: start: 20181220, end: 20181220
  3. ENDOXAN [Suspect]
     Active Substance: CYCLOPHOSPHAMIDE
     Indication: BREAST CANCER
     Dosage: DOSAGE FORM: POWDER-INJECTION, DILUTED WITH 100 ML OF  0.9% SODIUM CHLORIDE, ON DAY 1
     Route: 041
     Dates: start: 20181220, end: 20181220
  4. 5% GLUCOSE  INJECTION [Suspect]
     Active Substance: DEXTROSE
     Indication: MEDICATION DILUTION
     Dosage: DILUTED WITH PHARMORUBICIN RD 90 MG, ON DAY 1
     Route: 041
     Dates: start: 20181220, end: 20181220

REACTIONS (1)
  - Bone marrow failure [Recovered/Resolved]

NARRATIVE: CASE EVENT DATE: 20190109
